FAERS Safety Report 20800503 (Version 1)
Quarter: 2022Q2

REPORT INFORMATION
  Report Type: Report from Study
  Country: CA (occurrence: CA)
  Receive Date: 20220509
  Receipt Date: 20220509
  Transmission Date: 20220721
  Serious: Yes (Other)
  Sender: FDA-Public Use
  Company Number: CA-JNJFOC-20210443761

PATIENT
  Age: 62 Year
  Sex: Male

DRUGS (1)
  1. REMICADE [Suspect]
     Active Substance: INFLIXIMAB
     Indication: Ankylosing spondylitis
     Dosage: SINCE LAST INFUSION CLIENT HAS SPOKEN WITH KIDNEY SPECIALIST. UNSURE OF PLAN AT THIS POINT . CLIENT
     Route: 042

REACTIONS (8)
  - Lip neoplasm malignant stage unspecified [Recovered/Resolved]
  - Mobility decreased [Unknown]
  - Tinnitus [Not Recovered/Not Resolved]
  - Feeling abnormal [Unknown]
  - Blood pressure increased [Recovered/Resolved]
  - Pain [Recovered/Resolved]
  - Skin papilloma [Recovering/Resolving]
  - Musculoskeletal stiffness [Unknown]

NARRATIVE: CASE EVENT DATE: 20210421
